FAERS Safety Report 4916523-2 (Version None)
Quarter: 2006Q1

REPORT INFORMATION
  Report Type: 
  Country: None (occurrence: None)
  Receive Date: 20060220
  Receipt Date: 20060208
  Transmission Date: 20060701
  Serious: Yes (Other)
  Sender: FDA-Public Use
  Company Number: PHEH2006US01912

PATIENT
  Age: 52 Year
  Sex: Female

DRUGS (13)
  1. ZOMETA [Suspect]
     Indication: BONE DISORDER
     Dosage: 3-4 MG, Q3-4WKS
     Dates: start: 20031201
  2. TIOTROPIUM BROMIDE [Concomitant]
     Dosage: 18 UG, QD
     Dates: start: 20050301
  3. BACTRIM DS [Concomitant]
     Indication: PROPHYLAXIS
     Dosage: 1 UNK, BID MTW
     Dates: start: 20041201
  4. ZOLOFT [Concomitant]
     Indication: ANTIDEPRESSANT THERAPY
     Dosage: 100 MG, QD
     Dates: start: 20050101
  5. FLONASE [Concomitant]
     Indication: HYPERSENSITIVITY
     Dosage: 50 UG, QD
     Dates: start: 20050801
  6. K-DUR 10 [Concomitant]
     Indication: MINERAL SUPPLEMENTATION
     Dosage: 20 MEQ, QD
     Dates: start: 20031201
  7. MSIR [Concomitant]
     Indication: PAIN
     Dosage: 15 MG, PRN
  8. ARANESP [Concomitant]
     Indication: RED BLOOD CELL COUNT
     Dosage: Q2WK
     Dates: start: 20050801
  9. VELCADE [Concomitant]
     Dates: start: 20040601, end: 20041201
  10. FLUDARABINE PHOSPHATE [Concomitant]
     Indication: STEM CELL TRANSPLANT
     Dosage: 34 MG, UNK
     Dates: start: 20041201, end: 20041201
  11. M.V.I. [Concomitant]
     Indication: VITAMIN SUPPLEMENTATION
     Dosage: 1 UNK, QD
     Dates: start: 20031201
  12. FUROSEMIDE [Concomitant]
     Indication: DIURETIC THERAPY
     Dosage: 40 MG, QD
     Dates: start: 20031201
  13. SINGULAIR [Concomitant]
     Indication: ASTHMA
     Dosage: 10 MG, QD
     Dates: start: 20050301

REACTIONS (4)
  - ANAEMIA [None]
  - BONE DISORDER [None]
  - DEEP VEIN THROMBOSIS [None]
  - OSTEONECROSIS [None]
